FAERS Safety Report 24355839 (Version 3)
Quarter: 2025Q1

REPORT INFORMATION
  Report Type: Spontaneous
  Country: US (occurrence: US)
  Receive Date: 20240924
  Receipt Date: 20250127
  Transmission Date: 20250408
  Serious: No
  Sender: NOVARTIS
  Company Number: US-002147023-NVSC2024US189577

PATIENT
  Sex: Female
  Weight: 72 kg

DRUGS (1)
  1. SCEMBLIX [Suspect]
     Active Substance: ASCIMINIB HYDROCHLORIDE
     Indication: Chronic myeloid leukaemia
     Dosage: 20 MG, QD
     Route: 048

REACTIONS (12)
  - Muscle spasms [Not Recovered/Not Resolved]
  - Blood thyroid stimulating hormone increased [Not Recovered/Not Resolved]
  - Fatigue [Not Recovered/Not Resolved]
  - Nausea [Not Recovered/Not Resolved]
  - Depression [Not Recovered/Not Resolved]
  - COVID-19 [Recovering/Resolving]
  - Norovirus infection [Recovering/Resolving]
  - Candida infection [Recovering/Resolving]
  - Anosmia [Recovering/Resolving]
  - Ageusia [Recovering/Resolving]
  - Product dose omission issue [Recovering/Resolving]
  - Incorrect dose administered [Unknown]
